FAERS Safety Report 4395283-0 (Version None)
Quarter: 2004Q3

REPORT INFORMATION
  Report Type: 
  Country: None (occurrence: None)
  Receive Date: 20040706
  Receipt Date: 20040622
  Transmission Date: 20050211
  Serious: Yes (Hospitalization)
  Sender: FDA-Public Use
  Company Number: 2004SE01956

PATIENT
  Age: 66 Year
  Sex: Male
  Weight: 62.5 kg

DRUGS (13)
  1. BLOPRESS [Suspect]
     Indication: CARDIAC FAILURE
     Dosage: 4 MG QD PO
     Route: 048
     Dates: start: 20040310, end: 20040311
  2. BLOPRESS [Suspect]
     Indication: HYPERTENSION
     Dosage: 4 MG QD PO
     Route: 048
     Dates: start: 20040310, end: 20040311
  3. BLOPRESS [Suspect]
     Indication: CARDIAC FAILURE
     Dosage: 4 MG BID PO
     Route: 048
     Dates: start: 20040312, end: 20040318
  4. BLOPRESS [Suspect]
     Indication: HYPERTENSION
     Dosage: 4 MG BID PO
     Route: 048
     Dates: start: 20040312, end: 20040318
  5. BLOPRESS [Suspect]
     Indication: CARDIAC FAILURE
     Dosage: 4 MG QD PO
     Route: 048
     Dates: start: 20040319, end: 20040320
  6. BLOPRESS [Suspect]
     Indication: HYPERTENSION
     Dosage: 4 MG QD PO
     Route: 048
     Dates: start: 20040319, end: 20040320
  7. HARFDIGOXIN [Concomitant]
  8. WARFARIN SODIUM [Concomitant]
  9. ASPIRIN [Concomitant]
  10. PRAVASTATIN SODIUM [Concomitant]
  11. PURENNID [Concomitant]
  12. AMLODIPINE BESYLATE [Concomitant]
  13. NITROGLYCERIN [Concomitant]

REACTIONS (9)
  - BLOOD PRESSURE DECREASED [None]
  - CHEST PAIN [None]
  - DEPRESSED LEVEL OF CONSCIOUSNESS [None]
  - DRUG INTERACTION [None]
  - HEART RATE ABNORMAL [None]
  - HYPERHIDROSIS [None]
  - HYPOGLYCAEMIA [None]
  - MALAISE [None]
  - NASOPHARYNGITIS [None]
